FAERS Safety Report 16361017 (Version 2)
Quarter: 2019Q2

REPORT INFORMATION
  Report Type: Spontaneous
  Country: DE (occurrence: DE)
  Receive Date: 20190528
  Receipt Date: 20190606
  Transmission Date: 20190711
  Serious: Yes (Death, Other)
  Sender: FDA-Public Use
  Company Number: DE-AUROBINDO-AUR-APL-2019-028996

PATIENT

DRUGS (8)
  1. MEROPENEM. [Suspect]
     Active Substance: MEROPENEM
     Indication: STATUS EPILEPTICUS
     Dosage: UNK
     Route: 065
     Dates: start: 201602, end: 201602
  2. AMPICILLIN AND SULBACTAM [Suspect]
     Active Substance: AMPICILLIN SODIUM\SULBACTAM SODIUM
     Indication: INFECTION
  3. MIDAZOLAM [Concomitant]
     Active Substance: MIDAZOLAM HYDROCHLORIDE
     Indication: STATUS EPILEPTICUS
     Dosage: UNK
     Route: 065
     Dates: start: 201602
  4. MIDAZOLAM [Concomitant]
     Active Substance: MIDAZOLAM HYDROCHLORIDE
     Indication: MENINGITIS HAEMOPHILUS
  5. MEROPENEM. [Suspect]
     Active Substance: MEROPENEM
     Indication: MENINGITIS HAEMOPHILUS
  6. AMPICILLIN AND SULBACTAM [Suspect]
     Active Substance: AMPICILLIN SODIUM\SULBACTAM SODIUM
     Indication: STATUS EPILEPTICUS
     Dosage: UNK
     Route: 065
     Dates: start: 201602, end: 201602
  7. AMPICILLIN AND SULBACTAM [Suspect]
     Active Substance: AMPICILLIN SODIUM\SULBACTAM SODIUM
     Indication: MENINGITIS HAEMOPHILUS
  8. MEROPENEM. [Suspect]
     Active Substance: MEROPENEM
     Indication: INFECTION

REACTIONS (1)
  - Drug ineffective [Fatal]

NARRATIVE: CASE EVENT DATE: 201602
